FAERS Safety Report 6084719-5 (Version None)
Quarter: 2009Q1

REPORT INFORMATION
  Report Type: 
  Country: None (occurrence: None)
  Receive Date: 20090219
  Receipt Date: 20090212
  Transmission Date: 20090719
  Serious: Yes (Disabling)
  Sender: FDA-Public Use
  Company Number: AU-ALLERGAN-0901607US

PATIENT
  Sex: Female
  Weight: 46 kg

DRUGS (1)
  1. BOTOX [Suspect]
     Indication: BRUXISM
     Dosage: UNK, SINGLE
     Route: 030
     Dates: start: 20041217, end: 20041217

REACTIONS (1)
  - TRIGEMINAL NEURALGIA [None]
